FAERS Safety Report 5940622-X (Version None)
Quarter: 2008Q4

REPORT INFORMATION
  Report Type: 
  Country: None (occurrence: None)
  Receive Date: 20081103
  Receipt Date: 20081103
  Transmission Date: 20090506
  Serious: Yes (Other)
  Sender: FDA-Public Use
  Company Number: None

PATIENT
  Age: 74 Year
  Sex: Female
  Weight: 87.0906 kg

DRUGS (1)
  1. CYMBALTA [Suspect]
     Indication: PARAESTHESIA
     Dosage: 20 MG 2X DAILY MOUTH
     Route: 048
     Dates: start: 20081008, end: 20081010

REACTIONS (4)
  - ASTHENIA [None]
  - DIZZINESS [None]
  - HEADACHE [None]
  - NAUSEA [None]
